FAERS Safety Report 9611993 (Version 1)
Quarter: 2013Q4

REPORT INFORMATION
  Report Type: Spontaneous
  Country: FR (occurrence: FR)
  Receive Date: 20131010
  Receipt Date: 20131010
  Transmission Date: 20140711
  Serious: Yes (Life-Threatening, Hospitalization)
  Sender: FDA-Public Use
  Company Number: FR-ASTRAZENECA-2013SE74511

PATIENT
  Age: 3388 Week
  Sex: Female

DRUGS (7)
  1. ARIMIDEX [Suspect]
     Route: 048
     Dates: start: 201210
  2. ABILIFY [Suspect]
     Route: 048
     Dates: start: 201210, end: 20130720
  3. ESPERAL [Suspect]
     Route: 048
     Dates: start: 201210
  4. SERESTA [Suspect]
     Route: 048
     Dates: start: 201210
  5. PRAVASTATIN [Suspect]
     Dosage: UNSPECIFIED LABORATORY
     Route: 048
     Dates: start: 201210
  6. NOCTAMIDE [Suspect]
     Route: 048
     Dates: start: 201210
  7. OXYBUTYNIN [Suspect]
     Dosage: UNSPECIFIED LABORATORY
     Route: 048
     Dates: start: 201210

REACTIONS (3)
  - Inappropriate antidiuretic hormone secretion [Recovered/Resolved]
  - Grand mal convulsion [Recovered/Resolved]
  - Rhabdomyolysis [Recovered/Resolved]
